FAERS Safety Report 5800515-5 (Version None)
Quarter: 2008Q3

REPORT INFORMATION
  Report Type: 
  Country: None (occurrence: None)
  Receive Date: 20080703
  Receipt Date: 20080702
  Transmission Date: 20090109
  Serious: Yes (Other)
  Sender: FDA-Public Use
  Company Number: B0527602A

PATIENT

DRUGS (6)
  1. ZIAGEN [Suspect]
     Indication: DRUG USE FOR UNKNOWN INDICATION
  2. HEPATITIS A VACCINE [Suspect]
     Indication: DRUG USE FOR UNKNOWN INDICATION
  3. REYATAZ [Suspect]
     Indication: DRUG USE FOR UNKNOWN INDICATION
  4. NORVIR [Suspect]
     Indication: DRUG USE FOR UNKNOWN INDICATION
  5. VIREAD [Suspect]
     Indication: DRUG USE FOR UNKNOWN INDICATION
  6. VIDEX [Suspect]
     Indication: DRUG USE FOR UNKNOWN INDICATION

REACTIONS (2)
  - OCULAR ICTERUS [None]
  - YELLOW SKIN [None]
